FAERS Safety Report 19612465 (Version 1)
Quarter: 2021Q3

REPORT INFORMATION
  Report Type: Spontaneous
  Country: US (occurrence: US)
  Receive Date: 20210727
  Receipt Date: 20210727
  Transmission Date: 20211014
  Serious: Yes (Life-Threatening)
  Sender: FDA-Public Use
  Company Number: US-CELLTRION INC.-2021US009839

PATIENT

DRUGS (7)
  1. BENDAMUSTINE [Suspect]
     Active Substance: BENDAMUSTINE
     Indication: PLEURAL EFFUSION
  2. IBRUTINIB [Suspect]
     Active Substance: IBRUTINIB
     Dosage: RESTARTED
  3. RITUXIMAB (UNKNOWN) [Suspect]
     Active Substance: RITUXIMAB
     Indication: PLEURAL EFFUSION
     Dosage: 375 MG/M2 WHILE CONTINUING IBRUTINIB
     Dates: start: 202007
  4. IBRUTINIB [Suspect]
     Active Substance: IBRUTINIB
     Indication: MANTLE CELL LYMPHOMA STAGE IV
     Dosage: TRANSITIONED TO SINGLE AGENT IBRUTINIB WHICH HE TOLERATED WELL FOR 5 MONTHS
  5. RITUXIMAB (UNKNOWN) [Suspect]
     Active Substance: RITUXIMAB
     Indication: MANTLE CELL LYMPHOMA STAGE IV
     Dosage: UNK (WITH BENDAMUSTINE)
     Dates: start: 202001
  6. BENDAMUSTINE [Suspect]
     Active Substance: BENDAMUSTINE
     Indication: MANTLE CELL LYMPHOMA
     Dosage: UNK (WITH RITUXIMAB)
     Dates: start: 202001
  7. IBRUTINIB [Suspect]
     Active Substance: IBRUTINIB
     Indication: PLEURAL EFFUSION
     Dosage: CONTINUED WITH RITUXIMAB

REACTIONS (4)
  - Neutropenia [Recovered/Resolved]
  - Off label use [Unknown]
  - Generalised oedema [Unknown]
  - Febrile neutropenia [Recovered/Resolved]
